FAERS Safety Report 7728175-7 (Version None)
Quarter: 2011Q3

REPORT INFORMATION
  Report Type: 
  Country: None (occurrence: None)
  Receive Date: 20110905
  Receipt Date: 20110823
  Transmission Date: 20111222
  Serious: Yes (Hospitalization, Other)
  Sender: FDA-Public Use
  Company Number: US-AMGEN-USASP2011035943

PATIENT
  Age: 52 Year
  Sex: Male

DRUGS (4)
  1. ENBREL [Suspect]
     Indication: PSORIATIC ARTHROPATHY
  2. REMICADE [Concomitant]
     Dosage: UNK
  3. ENBREL [Suspect]
     Indication: PSORIASIS
     Dosage: 50 MG, 2 TIMES/WK
     Dates: start: 20020501
  4. METHOTREXATE [Concomitant]
     Dosage: UNK

REACTIONS (4)
  - INJECTION SITE HAEMATOMA [None]
  - PNEUMONIA [None]
  - RENAL IMPAIRMENT [None]
  - DRUG INEFFECTIVE [None]
